FAERS Safety Report 17298951 (Version 2)
Quarter: 2020Q1

REPORT INFORMATION
  Report Type: Spontaneous
  Country: US (occurrence: US)
  Receive Date: 20200122
  Receipt Date: 20200213
  Transmission Date: 20200409
  Serious: Yes (Other)
  Sender: FDA-Public Use
  Company Number: US-TEVA-2020-US-1171021

PATIENT
  Age: 70 Year
  Sex: Male

DRUGS (2)
  1. MYCOPHENOLATE MOFETIL. [Suspect]
     Active Substance: MYCOPHENOLATE MOFETIL
     Indication: SCLERODERMA
     Route: 065
  2. CETUXIMAB. [Suspect]
     Active Substance: CETUXIMAB
     Indication: OROPHARYNGEAL SQUAMOUS CELL CARCINOMA
     Route: 065

REACTIONS (6)
  - Papilloma viral infection [Recovering/Resolving]
  - Weight decreased [Unknown]
  - Dermatitis [Recovered/Resolved]
  - Mucosal inflammation [Recovered/Resolved]
  - Oropharyngeal squamous cell carcinoma [Recovering/Resolving]
  - Fatigue [Recovered/Resolved]
